FAERS Safety Report 6412217-5 (Version None)
Quarter: 2009Q4

REPORT INFORMATION
  Report Type: 
  Country: None (occurrence: None)
  Receive Date: 20091023
  Receipt Date: 20091016
  Transmission Date: 20100525
  Serious: Yes (Congenital Anomaly, Other)
  Sender: FDA-Public Use
  Company Number: B0597375A

PATIENT
  Sex: Female
  Weight: 62 kg

DRUGS (1)
  1. AUGMENTIN [Suspect]
     Dosage: 625MG TWICE PER DAY
     Route: 048
     Dates: start: 20090205, end: 20090209

REACTIONS (2)
  - DRUG EXPOSURE DURING PREGNANCY [None]
  - STILLBIRTH [None]
